FAERS Safety Report 10067426 (Version 1)
Quarter: 2014Q2

REPORT INFORMATION
  Report Type: Spontaneous
  Country: US (occurrence: None)
  Receive Date: 20140408
  Receipt Date: 20140408
  Transmission Date: 20141212
  Serious: Yes (Hospitalization)
  Sender: FDA-Public Use
  Company Number: None

PATIENT
  Age: 90 Year
  Sex: Female
  Weight: 54.43 kg

DRUGS (13)
  1. WARFARIN [Suspect]
     Indication: ATRIAL FIBRILLATION
     Dosage: 1 TABLET BEDTIME QHS/ BEDTIME
     Route: 048
  2. WARFARIN [Suspect]
     Indication: DEEP VEIN THROMBOSIS
     Dosage: 1 TABLET BEDTIME QHS/ BEDTIME
     Route: 048
  3. WARFARIN [Suspect]
     Indication: CORONARY ARTERY DISEASE
     Dosage: 1 TABLET BEDTIME QHS/ BEDTIME
     Route: 048
  4. WARFARIN [Suspect]
     Indication: CORONARY ARTERY DISEASE
     Dosage: 1 TABLET BEDTIME QHS/ BEDTIME
     Route: 048
  5. WARFARIN [Suspect]
     Indication: TRANSIENT ISCHAEMIC ATTACK
     Dosage: 1 TABLET BEDTIME QHS/ BEDTIME
     Route: 048
  6. ASPIRIN [Concomitant]
  7. DOCUSATE [Concomitant]
  8. FUROSEMIDE [Concomitant]
  9. SENNA PLUS [Concomitant]
  10. DICYCLOMINE [Concomitant]
  11. DIPHENHYDRAMINE [Concomitant]
  12. NORCO [Concomitant]
  13. DUONEB [Concomitant]

REACTIONS (4)
  - Melaena [None]
  - Faeces discoloured [None]
  - Vomiting [None]
  - International normalised ratio increased [None]
